FAERS Safety Report 11399331 (Version 3)
Quarter: 2015Q3

REPORT INFORMATION
  Report Type: Spontaneous
  Country: US (occurrence: US)
  Receive Date: 20150820
  Receipt Date: 20150915
  Transmission Date: 20151125
  Serious: No
  Sender: FDA-Public Use
  Company Number: US-UNITED THERAPEUTICS-UNT-2015-009700

PATIENT
  Sex: Female
  Weight: 60 kg

DRUGS (3)
  1. TYVASO [Suspect]
     Active Substance: TREPROSTINIL
     Dosage: 18-54 ?G, QID
  2. TYVASO [Suspect]
     Active Substance: TREPROSTINIL
     Indication: PULMONARY HYPERTENSION
     Dosage: 18-54 MCG, QID
     Dates: start: 20150730
  3. LETAIRIS [Concomitant]
     Active Substance: AMBRISENTAN
     Indication: PRODUCT USED FOR UNKNOWN INDICATION

REACTIONS (17)
  - Memory impairment [Unknown]
  - Photosensitivity reaction [Recovering/Resolving]
  - Fatigue [Unknown]
  - Somnolence [Unknown]
  - Dizziness [Recovering/Resolving]
  - Oropharyngeal pain [Unknown]
  - Bone pain [Unknown]
  - Visual impairment [Unknown]
  - Vision blurred [Recovering/Resolving]
  - Contusion [Unknown]
  - Cough [Unknown]
  - Arthralgia [Unknown]
  - Breath sounds abnormal [Unknown]
  - Back pain [Unknown]
  - Dyspnoea exertional [Unknown]
  - Rash [Unknown]
  - Headache [Recovering/Resolving]

NARRATIVE: CASE EVENT DATE: 2015
